FAERS Safety Report 24620501 (Version 3)
Quarter: 2025Q1

REPORT INFORMATION
  Report Type: Spontaneous
  Country: US (occurrence: US)
  Receive Date: 20241114
  Receipt Date: 20250127
  Transmission Date: 20250409
  Serious: Yes (Hospitalization)
  Sender: APELLIS PHARMACEUTICALS
  Company Number: US-APELLIS-2024-APL-0001076

PATIENT

DRUGS (2)
  1. SYFOVRE [Suspect]
     Active Substance: PEGCETACOPLAN
     Indication: Dry age-related macular degeneration
  2. DORZOLAMIDE [Concomitant]
     Active Substance: DORZOLAMIDE
     Indication: Product used for unknown indication
     Dosage: ONE DROP, 2X DAILY. STARTED ABOUT 2 MONTHS AGO
     Route: 050

REACTIONS (14)
  - Retinal occlusive vasculitis [Unknown]
  - Eye pain [Unknown]
  - Photophobia [Unknown]
  - Visual impairment [Unknown]
  - Corneal oedema [Recovered/Resolved]
  - Intraocular pressure increased [Recovered/Resolved]
  - Retinal ischaemia [Unknown]
  - Anterior chamber cell [Unknown]
  - Vitritis [Unknown]
  - Cystoid macular oedema [Unknown]
  - Vision blurred [Recovering/Resolving]
  - Retinal haemorrhage [Not Recovered/Not Resolved]
  - Eye inflammation [Unknown]
  - Macular degeneration [Unknown]

NARRATIVE: CASE EVENT DATE: 20240920
